FAERS Safety Report 6878509-0 (Version None)
Quarter: 2010Q3

REPORT INFORMATION
  Report Type: 
  Country: None (occurrence: None)
  Receive Date: 20100728
  Receipt Date: 20100716
  Transmission Date: 20110219
  Serious: Yes (Other)
  Sender: FDA-Public Use
  Company Number: PE-PFIZER INC-2010084165

PATIENT
  Age: 78 Year
  Sex: Male

DRUGS (3)
  1. PHENYTOIN SODIUM CAP [Suspect]
     Indication: CONVULSION
     Dosage: 100 MG, 3X/DAY
     Route: 048
  2. PHENYTOIN SODIUM CAP [Suspect]
     Dosage: 200 MG, DAILY
     Route: 048
  3. DIAZEPAM [Concomitant]
     Dosage: 5 MG, 1X/DAY AT NIGHT

REACTIONS (3)
  - ANXIETY [None]
  - CONVULSION [None]
  - NERVOUSNESS [None]
